FAERS Safety Report 13977361 (Version 1)
Quarter: 2017Q3

REPORT INFORMATION
  Report Type: Spontaneous
  Country: US (occurrence: US)
  Receive Date: 20170915
  Receipt Date: 20170915
  Transmission Date: 20171128
  Serious: Yes (Other)
  Sender: FDA-Public Use
  Company Number: PHEH2017US028652

PATIENT
  Sex: Female
  Weight: 59.4 kg

DRUGS (1)
  1. LETROZOLE. [Suspect]
     Active Substance: LETROZOLE
     Indication: BREAST CANCER
     Dosage: UNK
     Route: 065
     Dates: start: 20160708, end: 201702

REACTIONS (3)
  - Malignant neoplasm progression [Unknown]
  - Metastases to the mediastinum [Unknown]
  - Breast cancer [Unknown]
